FAERS Safety Report 9177887 (Version 1)
Quarter: 2013Q1

REPORT INFORMATION
  Report Type: Report from Study
  Country: US (occurrence: US)
  Receive Date: 20130321
  Receipt Date: 20130321
  Transmission Date: 20140127
  Serious: No
  Sender: FDA-Public Use
  Company Number: US-009507513-1302USA002475

PATIENT
  Sex: Male

DRUGS (4)
  1. BOCEPREVIR [Suspect]
     Indication: CHRONIC HEPATITIS C
     Dosage: UNK
     Dates: start: 20130122, end: 20130211
  2. RIBAVIRIN [Suspect]
     Indication: CHRONIC HEPATITIS C
     Dosage: 200 MG, QD
     Route: 048
     Dates: start: 20130122, end: 20130211
  3. PEGASYS [Suspect]
     Indication: CHRONIC HEPATITIS C
     Dosage: 135 MICROGRAM, QW
     Route: 058
     Dates: start: 20130122
  4. PEGASYS [Suspect]
     Dosage: 90 UNK, UNK
     Route: 058
     Dates: end: 20130211

REACTIONS (7)
  - White blood cell count decreased [Unknown]
  - Chills [Unknown]
  - Dry mouth [Unknown]
  - Peripheral coldness [Unknown]
  - Oropharyngeal pain [Unknown]
  - Immunisation [Unknown]
  - Headache [Unknown]
